FAERS Safety Report 22197834 (Version 2)
Quarter: 2023Q2

REPORT INFORMATION
  Report Type: Other
  Country: IN (occurrence: None)
  Receive Date: 20230411
  Receipt Date: 20230517
  Transmission Date: 20230722
  Serious: Yes (Other)
  Sender: FDA-Public Use
  Company Number: IN-ROCHE-3271680

PATIENT
  Age: 43 Year
  Sex: Female
  Weight: 65.5 kg

DRUGS (2)
  1. TECENTRIQ [Suspect]
     Active Substance: ATEZOLIZUMAB
     Indication: Lung cancer metastatic
     Route: 042
     Dates: start: 20220720
  2. TECENTRIQ [Suspect]
     Active Substance: ATEZOLIZUMAB
     Indication: Lung neoplasm malignant

REACTIONS (8)
  - Blood pressure increased [Unknown]
  - Heart rate increased [Unknown]
  - Pain [Unknown]
  - Cough [Not Recovered/Not Resolved]
  - Rash [Unknown]
  - Chest pain [Not Recovered/Not Resolved]
  - Off label use [Unknown]
  - Disease progression [Unknown]

NARRATIVE: CASE EVENT DATE: 20220819
